FAERS Safety Report 7319251-1 (Version None)
Quarter: 2011Q1

REPORT INFORMATION
  Report Type: 
  Country: None (occurrence: None)
  Receive Date: 20110228
  Receipt Date: 20110223
  Transmission Date: 20110831
  Serious: Yes (Death, Hospitalization, Other)
  Sender: FDA-Public Use
  Company Number: PHBS2009US01051

PATIENT
  Sex: Male
  Weight: 75 kg

DRUGS (10)
  1. VIDAZA [Concomitant]
     Indication: MYELODYSPLASTIC SYNDROME
     Route: 042
  2. SIMVASTATIN [Concomitant]
     Indication: HYPERLIPIDAEMIA
     Route: 048
  3. TOPROL-XL [Concomitant]
     Indication: HYPERTENSION
  4. EXJADE [Suspect]
     Indication: IRON OVERLOAD
     Dosage: 2000 MG, QD
     Route: 048
     Dates: start: 20091101
  5. EXJADE [Suspect]
     Dosage: 500 MG, BID
  6. SIMVASTATIN [Concomitant]
     Indication: ARTERIOSCLEROSIS
  7. EXJADE [Suspect]
     Dosage: 1500 MG, BID
     Dates: start: 20100101
  8. PREDNISONE [Concomitant]
     Indication: MYELODYSPLASTIC SYNDROME
  9. ASPIRIN [Concomitant]
     Indication: ARTERIOSCLEROSIS
     Dosage: 81 MG, UNK
  10. DECITABINE [Concomitant]
     Indication: MYELODYSPLASTIC SYNDROME
     Dosage: UNK
     Route: 042
     Dates: start: 20090101, end: 20100101

REACTIONS (7)
  - OVERDOSE [None]
  - OXYGEN SATURATION DECREASED [None]
  - RED BLOOD CELL COUNT DECREASED [None]
  - RASH [None]
  - DIARRHOEA [None]
  - NEOPLASM MALIGNANT [None]
  - FAECES DISCOLOURED [None]
